FAERS Safety Report 25869351 (Version 1)
Quarter: 2025Q4

REPORT INFORMATION
  Report Type: Spontaneous
  Country: US (occurrence: US)
  Receive Date: 20251001
  Receipt Date: 20251001
  Transmission Date: 20260117
  Serious: No
  Sender: RECKITT BENCKISER
  Company Number: US-INDIVIOR US-INDV-156784-2024

PATIENT
  Sex: Female

DRUGS (3)
  1. SUBLOCADE [Suspect]
     Active Substance: BUPRENORPHINE
     Indication: Product used for unknown indication
     Dosage: UNK, QMO
     Route: 065
     Dates: start: 202308
  2. SUBLOCADE [Suspect]
     Active Substance: BUPRENORPHINE
     Dosage: UNK, QMO
     Route: 065
     Dates: start: 202309
  3. COSENTYX [Concomitant]
     Active Substance: SECUKINUMAB
     Indication: Psoriasis
     Dosage: UNK, QMO
     Route: 051

REACTIONS (3)
  - Pain [Not Recovered/Not Resolved]
  - Drug level fluctuating [Unknown]
  - Malaise [Not Recovered/Not Resolved]
